FAERS Safety Report 4773266-6 (Version None)
Quarter: 2005Q3

REPORT INFORMATION
  Report Type: 
  Country: None (occurrence: None)
  Receive Date: 20050916
  Receipt Date: 20050901
  Transmission Date: 20060218
  Serious: Yes (Hospitalization, Other)
  Sender: FDA-Public Use
  Company Number: 2005124413

PATIENT
  Sex: Female

DRUGS (1)
  1. MACUGEN [Suspect]
     Indication: ILL-DEFINED DISORDER
     Dosage: (1 IN 6 WK), INTRAVENOUS
     Route: 042
     Dates: start: 20050801

REACTIONS (3)
  - COMA [None]
  - PARALYSIS [None]
  - RASH [None]
